FAERS Safety Report 10057602 (Version 1)
Quarter: 2014Q2

REPORT INFORMATION
  Report Type: Spontaneous
  Country: JP (occurrence: JP)
  Receive Date: 20140404
  Receipt Date: 20140404
  Transmission Date: 20141212
  Serious: Yes (Hospitalization, Disabling, Other)
  Sender: FDA-Public Use
  Company Number: JP-PFIZER INC-2014092621

PATIENT
  Age: 68 Year
  Sex: Male

DRUGS (5)
  1. CAMPTO [Suspect]
     Indication: PANCREATIC CARCINOMA
     Dosage: 260 MG, 1X/DAY
     Route: 041
     Dates: start: 20140318, end: 20140318
  2. LEVOLEUCOVORIN CALCIUM [Suspect]
     Indication: PANCREATIC CARCINOMA
     Dosage: 300 MG, 1X/DAY
     Route: 041
     Dates: start: 20140318, end: 20140318
  3. ELPLAT [Suspect]
     Indication: PANCREATIC CARCINOMA
     Dosage: 125 MG, 1X/DAY
     Route: 041
     Dates: start: 20140318, end: 20140318
  4. 5-FU [Suspect]
     Indication: PANCREATIC CARCINOMA
     Dosage: UNK, ONCE A DAY
     Route: 040
     Dates: start: 20140318, end: 20140318
  5. 5-FU [Suspect]
     Dosage: 3500 MG, ONCE IN 2 DAYS
     Route: 041
     Dates: start: 20140318, end: 20140318

REACTIONS (1)
  - Infarction [Unknown]
